FAERS Safety Report 7428891-0 (Version None)
Quarter: 2011Q2

REPORT INFORMATION
  Report Type: 
  Country: None (occurrence: None)
  Receive Date: 20110412
  Receipt Date: 20110328
  Transmission Date: 20111010
  Serious: Yes (Other)
  Sender: FDA-Public Use
  Company Number: AUR-APL-2011-01120

PATIENT
  Age: 60 Year
  Sex: Male
  Weight: 77.2 kg

DRUGS (6)
  1. KETOPROFEN [Concomitant]
  2. SIMVASTATIN [Suspect]
     Dates: start: 20110316
  3. ATORVASTATIN CALCIUM [Concomitant]
  4. ACETAMINOPHEN AND CODEINE PHOSPHATE [Concomitant]
  5. PARACETAMOL [Concomitant]
  6. OMEPRAZOLE [Concomitant]

REACTIONS (1)
  - MOUTH ULCERATION [None]
